FAERS Safety Report 9175867 (Version 1)
Quarter: 2013Q1

REPORT INFORMATION
  Report Type: Spontaneous
  Country: US (occurrence: US)
  Receive Date: 20130320
  Receipt Date: 20130320
  Transmission Date: 20140127
  Serious: Yes (Hospitalization)
  Sender: FDA-Public Use
  Company Number: US-MYLANLABS-2013S1005370

PATIENT
  Age: 58 Year
  Sex: Male

DRUGS (1)
  1. AZATHIOPRINE [Suspect]
     Indication: CROHN^S DISEASE
     Route: 065

REACTIONS (3)
  - Neutrophilic dermatosis [Recovered/Resolved]
  - Erythema nodosum [Recovered/Resolved]
  - Hypersensitivity [Recovered/Resolved]
